FAERS Safety Report 5281749-8 (Version None)
Quarter: 2007Q1

REPORT INFORMATION
  Report Type: 
  Country: None (occurrence: None)
  Receive Date: 20070330
  Receipt Date: 20070328
  Transmission Date: 20070707
  Serious: Yes (Other)
  Sender: FDA-Public Use
  Company Number: JP-JPN-A200701025

PATIENT
  Age: 9 Year
  Sex: Female

DRUGS (5)
  1. RELENZA [Suspect]
     Indication: INFLUENZA LIKE ILLNESS
     Dosage: 5MG FOUR TIMES PER DAY
     Route: 055
     Dates: start: 20070303, end: 20070307
  2. PELEX [Suspect]
     Indication: INFLUENZA LIKE ILLNESS
     Route: 048
     Dates: start: 20070303
  3. ZADITEN [Concomitant]
     Route: 065
  4. UNKNOWN DRUG [Concomitant]
     Indication: INFLUENZA LIKE ILLNESS
     Route: 054
  5. UNKNOWN DRUG [Concomitant]

REACTIONS (4)
  - ABNORMAL BEHAVIOUR [None]
  - CRYING [None]
  - MEMORY IMPAIRMENT [None]
  - PSYCHOMOTOR SEIZURES [None]
